FAERS Safety Report 6970780-X (Version None)
Quarter: 2010Q3

REPORT INFORMATION
  Report Type: 
  Country: None (occurrence: None)
  Receive Date: 20100908
  Receipt Date: 20100902
  Transmission Date: 20110219
  Serious: No
  Sender: FDA-Public Use
  Company Number: A0866105A

PATIENT
  Age: 86 Year
  Sex: Male
  Weight: 86.4 kg

DRUGS (5)
  1. CARVEDILOL [Suspect]
     Indication: ARRHYTHMIA
     Dosage: 9.375MG PER DAY
     Route: 048
     Dates: start: 20091001
  2. CARVEDILOL [Suspect]
     Route: 048
  3. SOTALOL [Suspect]
     Indication: PRODUCT USED FOR UNKNOWN INDICATION
     Route: 065
  4. DIOVAN [Suspect]
     Indication: HYPERTENSION
     Dosage: 160MG UNKNOWN
     Route: 065
     Dates: start: 20080101
  5. LIPITOR [Suspect]
     Indication: PRODUCT USED FOR UNKNOWN INDICATION
     Dosage: 10MG UNKNOWN
     Route: 065
     Dates: start: 20070101

REACTIONS (5)
  - ASTHENIA [None]
  - CONDITION AGGRAVATED [None]
  - DRUG INTERACTION [None]
  - DYSPNOEA [None]
  - FATIGUE [None]
